FAERS Safety Report 8604632-6 (Version None)
Quarter: 2012Q3

REPORT INFORMATION
  Report Type: 
  Country: None (occurrence: None)
  Receive Date: 20120820
  Receipt Date: 20120815
  Transmission Date: 20120928
  Serious: Yes (Death, Other)
  Sender: FDA-Public Use
  Company Number: PHHY2012MX030544

PATIENT
  Sex: Female

DRUGS (3)
  1. LYRICA [Concomitant]
     Dosage: 1 DF, DAILY
     Route: 048
     Dates: start: 20110701
  2. ALPRAZOLAM [Concomitant]
     Indication: SLEEP DISORDER
     Dosage: 0.75 MG, DAILY
     Route: 048
     Dates: start: 20090101
  3. STALEVO 100 [Suspect]
     Indication: PARKINSON'S DISEASE
     Dosage: 200/150/37.5 MG, 2 DF DAILY
     Route: 048
     Dates: start: 20110101, end: 20120624

REACTIONS (8)
  - DYSPHAGIA [None]
  - FATIGUE [None]
  - PNEUMONIA [None]
  - TRISMUS [None]
  - SPEECH DISORDER [None]
  - PARKINSON'S DISEASE [None]
  - CARDIO-RESPIRATORY ARREST [None]
  - DISEASE PROGRESSION [None]
